FAERS Safety Report 11635615 (Version 1)
Quarter: 2015Q4

REPORT INFORMATION
  Report Type: Spontaneous
  Country: US (occurrence: US)
  Receive Date: 20151016
  Receipt Date: 20151016
  Transmission Date: 20160304
  Serious: No
  Sender: FDA-Public Use
  Company Number: US-PFIZER INC-2015336268

PATIENT
  Age: 27 Year
  Sex: Female
  Weight: 73 kg

DRUGS (4)
  1. MOBIC [Concomitant]
     Active Substance: MELOXICAM
     Indication: CYSTITIS INTERSTITIAL
  2. MOBIC [Concomitant]
     Active Substance: MELOXICAM
     Indication: ENDOMETRIOSIS
     Dosage: 7 MG, 2X/DAY
  3. MOBIC [Concomitant]
     Active Substance: MELOXICAM
     Indication: PELVIC DEFORMITY
  4. LYRICA [Suspect]
     Active Substance: PREGABALIN
     Indication: PAIN
     Dosage: 75 MG, 2X/DAY
     Route: 048
     Dates: start: 20150922, end: 20151005

REACTIONS (3)
  - Drug withdrawal syndrome [Not Recovered/Not Resolved]
  - Product use issue [Unknown]
  - Pain [Not Recovered/Not Resolved]

NARRATIVE: CASE EVENT DATE: 20151006
